FAERS Safety Report 5839181-1 (Version None)
Quarter: 2008Q3

REPORT INFORMATION
  Report Type: 
  Country: None (occurrence: None)
  Receive Date: 20080808
  Receipt Date: 20080804
  Transmission Date: 20090109
  Serious: Yes (Hospitalization, Disabling)
  Sender: FDA-Public Use
  Company Number: US-MERCK-0805USA00684

PATIENT
  Sex: Female

DRUGS (5)
  1. FOSAMAX [Suspect]
     Indication: OSTEOPOROSIS
     Route: 048
     Dates: start: 19980101, end: 20030101
  2. FOSAMAX [Suspect]
     Route: 048
     Dates: start: 20031111, end: 20080101
  3. FOSAMAX [Suspect]
     Indication: OSTEOARTHRITIS
     Route: 048
     Dates: start: 19980101, end: 20030101
  4. FOSAMAX [Suspect]
     Route: 048
     Dates: start: 20031111, end: 20080101
  5. PREDNISONE [Concomitant]
     Indication: RHEUMATOID ARTHRITIS
     Route: 065
     Dates: start: 19980101

REACTIONS (37)
  - ANXIETY [None]
  - ARTHRITIS [None]
  - BILE DUCT STONE [None]
  - DENTAL CARIES [None]
  - DEPRESSION [None]
  - DYSPNOEA [None]
  - ERYTHEMA NODOSUM [None]
  - EXCORIATION [None]
  - FOLLICULITIS [None]
  - GALLBLADDER DISORDER [None]
  - GINGIVAL INFECTION [None]
  - HEADACHE [None]
  - HERPES ZOSTER [None]
  - IMPAIRED HEALING [None]
  - INTERSTITIAL LUNG DISEASE [None]
  - JAW DISORDER [None]
  - JOINT DISLOCATION [None]
  - MELANOCYTIC NAEVUS [None]
  - NECK INJURY [None]
  - OEDEMA MOUTH [None]
  - ORAL INFECTION [None]
  - ORAL PAIN [None]
  - OSTEOPENIA [None]
  - OSTEOPOROSIS [None]
  - PAIN [None]
  - PAIN IN JAW [None]
  - PATELLOFEMORAL PAIN SYNDROME [None]
  - POLYMYOSITIS [None]
  - RASH [None]
  - SARCOIDOSIS [None]
  - SINUS HEADACHE [None]
  - SJOGREN'S SYNDROME [None]
  - TEMPOROMANDIBULAR JOINT SYNDROME [None]
  - TOOTH EXTRACTION [None]
  - TOOTH INJURY [None]
  - TOOTH LOSS [None]
  - VASCULITIC RASH [None]
